FAERS Safety Report 11044096 (Version 1)
Quarter: 2015Q2

REPORT INFORMATION
  Report Type: Spontaneous
  Country: JP (occurrence: JP)
  Receive Date: 20150417
  Receipt Date: 20150417
  Transmission Date: 20150821
  Serious: Yes (Hospitalization, Other)
  Sender: FDA-Public Use
  Company Number: JP-GLAXOSMITHKLINE-JP2015JPN045196

PATIENT
  Sex: Female
  Weight: 62 kg

DRUGS (2)
  1. AMERGE [Suspect]
     Active Substance: NARATRIPTAN HYDROCHLORIDE
     Indication: MIGRAINE
     Dosage: 2.5 MG, PRN
     Route: 048
     Dates: start: 2014
  2. THYRADIN [Concomitant]
     Active Substance: LEVOTHYROXINE
     Dosage: 50 ?G, QD

REACTIONS (4)
  - Mediastinal disorder [Recovered/Resolved]
  - Headache [Recovered/Resolved]
  - Prinzmetal angina [Recovered/Resolved]
  - Chest discomfort [Recovered/Resolved]
